FAERS Safety Report 6470893-5 (Version None)
Quarter: 2009Q4

REPORT INFORMATION
  Report Type: 
  Country: None (occurrence: None)
  Receive Date: 20091203
  Receipt Date: 20080616
  Transmission Date: 20100525
  Serious: Yes (Death, Other)
  Sender: FDA-Public Use
  Company Number: FR-ELI_LILLY_AND_COMPANY-FR200801001359

PATIENT
  Age: 85 Year
  Sex: Female

DRUGS (6)
  1. FORTEO [Suspect]
     Indication: OSTEOPOROSIS
     Dosage: 20 UG, DAILY (1/D)
     Route: 058
     Dates: start: 20061208
  2. CALCIDOSE VITAMINE D [Concomitant]
     Dosage: 2 D/F, DAILY (1/D)
     Route: 065
  3. LEVOTHYROXINE SODIUM [Concomitant]
     Dosage: 50 UG, DAILY (1/D)
     Route: 065
  4. STABLON [Concomitant]
     Dosage: 12.5 MG, 3/D
     Route: 065
  5. BIPRETERAX [Concomitant]
     Dosage: 1 D/F, DAILY (1/D)
     Route: 065
  6. DIGOXIN [Concomitant]
     Dosage: 0.125 MG, DAILY (1/D)
     Route: 065

REACTIONS (2)
  - LUNG NEOPLASM MALIGNANT [None]
  - PULMONARY EMBOLISM [None]
